FAERS Safety Report 18453104 (Version 2)
Quarter: 2020Q4

REPORT INFORMATION
  Report Type: Report from Study
  Country: BD (occurrence: BD)
  Receive Date: 20201102
  Receipt Date: 20201107
  Transmission Date: 20210114
  Serious: Yes (Death, Hospitalization)
  Sender: FDA-Public Use
  Company Number: NVSC2020BD293612

PATIENT
  Age: 58 Year
  Sex: Female

DRUGS (1)
  1. CRILOMUS [Suspect]
     Active Substance: TACROLIMUS
     Indication: RENAL TRANSPLANT
     Dosage: 0.5 MG, BID
     Route: 065
     Dates: start: 2017

REACTIONS (1)
  - Cardiac arrest [Fatal]
